FAERS Safety Report 8439587-0 (Version None)
Quarter: 2012Q2

REPORT INFORMATION
  Report Type: 
  Country: None (occurrence: None)
  Receive Date: 20120615
  Receipt Date: 20120607
  Transmission Date: 20120825
  Serious: Yes (Hospitalization, Other)
  Sender: FDA-Public Use
  Company Number: ES-JNJFOC-20101005311

PATIENT
  Sex: Male
  Weight: 56.7 kg

DRUGS (6)
  1. REMICADE [Suspect]
     Route: 042
  2. REMICADE [Suspect]
     Dosage: INCREASED TO 300 MG ON 15-MAR-2011
     Route: 042
     Dates: start: 20100527
  3. AZATHIOPRINE [Concomitant]
     Route: 048
  4. REMICADE [Suspect]
     Indication: COLITIS ULCERATIVE
     Route: 042
     Dates: start: 20100419
  5. LEUCOVORIN CALCIUM [Concomitant]
     Indication: COLITIS ULCERATIVE
     Route: 048
     Dates: start: 20060223
  6. AZATHIOPRINE [Concomitant]
     Indication: COLITIS ULCERATIVE
     Route: 048
     Dates: start: 20050803

REACTIONS (3)
  - LUNG INFECTION [None]
  - PYREXIA [None]
  - TUBERCULOSIS [None]
